FAERS Safety Report 7516379-8 (Version None)
Quarter: 2011Q2

REPORT INFORMATION
  Report Type: 
  Country: None (occurrence: None)
  Receive Date: 20110428
  Receipt Date: 20101208
  Transmission Date: 20111010
  Serious: Yes (Hospitalization)
  Sender: FDA-Public Use
  Company Number: 2010PROUSA00138

PATIENT
  Age: 69 Year
  Sex: Male
  Weight: 81.6 kg

DRUGS (15)
  1. NAPROXEN [Concomitant]
  2. SENOKOT /00142201/ (SENNA ALEXANDRINA) [Concomitant]
  3. NOVOLOG [Concomitant]
  4. ZOFRAN /00955301/ (ONDANSETRON) [Concomitant]
  5. ASPIRIN [Concomitant]
  6. GEMFIBROZIL [Concomitant]
  7. NILANDRON [Concomitant]
  8. LUPRON [Concomitant]
  9. PROVENGE [Suspect]
  10. ACIPHEX [Concomitant]
  11. HYDROCHLOROTHIAZIDE [Concomitant]
  12. PROVENGE [Suspect]
     Indication: PROSTATE CANCER METASTATIC
     Dosage: 250 ML, SINGLE; 250 ML, SINGLE, INTRAVENOUS
     Route: 042
     Dates: start: 20101118, end: 20101118
  13. PROVENGE [Suspect]
     Indication: PROSTATE CANCER METASTATIC
     Dosage: 250 ML, SINGLE; 250 ML, SINGLE, INTRAVENOUS
     Route: 042
     Dates: start: 20101025, end: 20101025
  14. OMEPRAZOLE [Concomitant]
  15. LISINOPRIL [Concomitant]

REACTIONS (4)
  - MUSCULAR WEAKNESS [None]
  - SPINAL CORD COMPRESSION [None]
  - MONOPLEGIA [None]
  - HYPOAESTHESIA [None]
